FAERS Safety Report 6492210-7 (Version None)
Quarter: 2009Q4

REPORT INFORMATION
  Report Type: 
  Country: None (occurrence: None)
  Receive Date: 20091214
  Receipt Date: 20090828
  Transmission Date: 20100525
  Serious: No
  Sender: FDA-Public Use
  Company Number: A0804851A

PATIENT
  Age: 60 Year
  Sex: Female

DRUGS (4)
  1. AVANDARYL [Suspect]
     Dosage: 1TAB PER DAY
     Route: 048
     Dates: start: 20060201
  2. AVANDARYL [Suspect]
     Dosage: 2TAB PER DAY
     Route: 048
     Dates: start: 20090701
  3. LASIX [Concomitant]
  4. AMARYL [Concomitant]

REACTIONS (6)
  - BACK PAIN [None]
  - JOINT SWELLING [None]
  - OEDEMA PERIPHERAL [None]
  - PARAESTHESIA [None]
  - WEIGHT DECREASED [None]
  - WEIGHT INCREASED [None]
